FAERS Safety Report 7889608-9 (Version None)
Quarter: 2011Q4

REPORT INFORMATION
  Report Type: 
  Country: None (occurrence: None)
  Receive Date: 20111103
  Receipt Date: 20110809
  Transmission Date: 20120403
  Serious: No
  Sender: FDA-Public Use
  Company Number: US-BRISTOL-MYERS SQUIBB COMPANY-15956378

PATIENT
  Age: 19 Year
  Sex: Female

DRUGS (1)
  1. KENALOG-40 [Suspect]
     Indication: URTICARIA
     Dosage: 1DF:1CC,IM INTO THE GLUTEUS MUSCLE
     Route: 030

REACTIONS (1)
  - INJECTION SITE ATROPHY [None]
